FAERS Safety Report 4285972-0 (Version None)
Quarter: 2004Q1

REPORT INFORMATION
  Report Type: 
  Country: None (occurrence: None)
  Receive Date: 20040204
  Receipt Date: 20040204
  Transmission Date: 20041129
  Serious: Yes (Hospitalization)
  Sender: FDA-Public Use
  Company Number: None

PATIENT
  Sex: Male

DRUGS (2)
  1. DOXEPIN HCL [Suspect]
     Dosage: 100 MG QHS ORAL
     Route: 048
     Dates: start: 20031015, end: 20031028
  2. TRAZODONE HCL [Suspect]
     Dosage: 200 MG QHS ORAL
     Route: 048
     Dates: start: 20031015, end: 20031028

REACTIONS (1)
  - CONVULSION [None]
